FAERS Safety Report 26175595 (Version 1)
Quarter: 2025Q4

REPORT INFORMATION
  Report Type: Spontaneous
  Country: US (occurrence: US)
  Receive Date: 20251218
  Receipt Date: 20251218
  Transmission Date: 20260117
  Serious: Yes (Hospitalization, Other)
  Sender: BAYER HEALTHCARE LLC
  Company Number: US-BAYER-2025A165315

PATIENT
  Age: 88 Year
  Sex: Female

DRUGS (7)
  1. ASPIRIN [Suspect]
     Active Substance: ASPIRIN
     Indication: Antiplatelet therapy
     Dosage: 81 MG
  2. ASPIRIN [Suspect]
     Active Substance: ASPIRIN
     Indication: Antiplatelet therapy
     Dosage: 324 MG
  3. CLOPIDOGREL [Concomitant]
     Active Substance: CLOPIDOGREL BISULFATE
     Indication: Antiplatelet therapy
     Dosage: 600 MG
  4. CLOPIDOGREL [Concomitant]
     Active Substance: CLOPIDOGREL BISULFATE
     Indication: Antiplatelet therapy
     Dosage: 75 MG
  5. OLANZAPINE [Concomitant]
     Active Substance: OLANZAPINE
     Dosage: 5 MG
     Route: 030
  6. ZIPRASIDONE [Concomitant]
     Active Substance: ZIPRASIDONE
     Dosage: 10 MG
     Route: 030
  7. DEXMEDETOMIDINE [Concomitant]
     Active Substance: DEXMEDETOMIDINE
     Dosage: 120 ?G

REACTIONS (2)
  - Haematoma muscle [None]
  - Blood loss anaemia [None]
